FAERS Safety Report 24524634 (Version 1)
Quarter: 2024Q4

REPORT INFORMATION
  Report Type: Report from Study
  Country: US (occurrence: US)
  Receive Date: 20241019
  Receipt Date: 20241019
  Transmission Date: 20250115
  Serious: Yes (Other)
  Sender: ABBVIE
  Company Number: US-ABBVIE-5967837

PATIENT
  Age: 21 Year
  Sex: Male

DRUGS (1)
  1. SKYRIZI [Suspect]
     Active Substance: RISANKIZUMAB-RZAA
     Indication: Crohn^s disease
     Route: 058
     Dates: start: 20240224

REACTIONS (3)
  - Adenoidectomy [Recovering/Resolving]
  - Turbinectomy [Recovering/Resolving]
  - Ear tube insertion [Recovering/Resolving]

NARRATIVE: CASE EVENT DATE: 20241001
